FAERS Safety Report 9678175 (Version 1)
Quarter: 2013Q4

REPORT INFORMATION
  Report Type: Spontaneous
  Country: US (occurrence: US)
  Receive Date: 20131108
  Receipt Date: 20131108
  Transmission Date: 20140711
  Serious: No
  Sender: FDA-Public Use
  Company Number: US-TARO-2013P1000187

PATIENT
  Age: 69 Year
  Sex: Male
  Weight: 73.94 kg

DRUGS (5)
  1. ENALAPRIL MALEATE AND HYDROCHLOROTHIAZIDE TABLETS USP 10/25MG [Suspect]
     Route: 048
     Dates: start: 2011, end: 201212
  2. ENALAPRIL MALEATE AND HYDROCHLOROTHIAZIDE TABLETS USP 10/25MG [Suspect]
     Route: 048
     Dates: start: 201212, end: 20130102
  3. UNSPECIFIED EYE DROPS [Concomitant]
  4. UNSPECIFIED VITAMINS [Concomitant]
  5. SAW PALMETTO [Concomitant]

REACTIONS (4)
  - Palpitations [Recovered/Resolved]
  - Heart rate increased [Recovered/Resolved]
  - Feeling abnormal [Recovered/Resolved]
  - Product substitution issue [Recovered/Resolved]
